FAERS Safety Report 7162563-5 (Version None)
Quarter: 2010Q4

REPORT INFORMATION
  Report Type: 
  Country: None (occurrence: None)
  Receive Date: 20101215
  Receipt Date: 20091121
  Transmission Date: 20110411
  Serious: Yes (Other)
  Sender: FDA-Public Use
  Company Number: FR-PFIZER INC-2009301103

PATIENT
  Age: 20 Year
  Sex: Male

DRUGS (2)
  1. LYRICA [Suspect]
     Dosage: 150 MG, UNK
     Dates: start: 20091101
  2. TERCIAN [Concomitant]
     Dosage: UNK

REACTIONS (3)
  - DISORIENTATION [None]
  - INTENTIONAL DRUG MISUSE [None]
  - SOMNOLENCE [None]
